FAERS Safety Report 12471298 (Version 1)
Quarter: 2016Q2

REPORT INFORMATION
  Report Type: Spontaneous
  Country: US (occurrence: None)
  Receive Date: 20160615
  Receipt Date: 20160615
  Transmission Date: 20160815
  Serious: No
  Sender: FDA-Public Use
  Company Number: None

PATIENT
  Sex: Male

DRUGS (1)
  1. WALGREENS STERILE ADVANCE RELIEF EYE DROPS [Suspect]
     Active Substance: DEXTRAN 70\POLYETHYLENE GLYCOL 400\POVIDONE\TETRAHYDROZOLINE HYDROCHLORIDE
     Dates: start: 20160208, end: 20160208

REACTIONS (4)
  - Product contamination physical [None]
  - Eye pain [None]
  - Injury corneal [None]
  - Foreign body in eye [None]

NARRATIVE: CASE EVENT DATE: 20160208
